FAERS Safety Report 9354311 (Version 1)
Quarter: 2013Q2

REPORT INFORMATION
  Report Type: Spontaneous
  Country: GB (occurrence: None)
  Receive Date: 20130613
  Receipt Date: 20130613
  Transmission Date: 20140414
  Serious: Yes (Other)
  Sender: FDA-Public Use
  Company Number: 2013AP005853

PATIENT
  Age: 77 Year
  Sex: Male

DRUGS (5)
  1. ALENDRONATE (ALENDRONATE SODIUM) [Suspect]
     Route: 048
     Dates: start: 20120330, end: 20130505
  2. CLOPIDOGREL (CLOPIDOGREL) [Concomitant]
  3. FOLIC ACID (FOLIC ACID) [Concomitant]
  4. FUROSEMIDE (FUROSEMIDE) [Concomitant]
  5. OMEPRAZOLE (OMEPRAZOLE) [Concomitant]

REACTIONS (5)
  - Abdominal pain [None]
  - Anaemia [None]
  - Haematemesis [None]
  - Mucosal ulceration [None]
  - Oesophageal ulcer [None]
